FAERS Safety Report 17324359 (Version 4)
Quarter: 2020Q1

REPORT INFORMATION
  Report Type: Spontaneous
  Country: IL (occurrence: IL)
  Receive Date: 20200127
  Receipt Date: 20200225
  Transmission Date: 20200409
  Serious: Yes (Hospitalization, Other)
  Sender: FDA-Public Use
  Company Number: IL-CELLTRION INC.-2020IL018307

PATIENT

DRUGS (20)
  1. DOXORUBICIN TEVA [Concomitant]
     Active Substance: DOXORUBICIN
     Dosage: UNK
  2. TAVANIC [Concomitant]
     Active Substance: LEVOFLOXACIN
     Dosage: 500 MG
  3. SOLU-MEDROL [Concomitant]
     Active Substance: METHYLPREDNISOLONE SODIUM SUCCINATE
     Dosage: 125 MG
  4. TRUXIMA [Suspect]
     Active Substance: RITUXIMAB-ABBS
     Indication: BURKITT^S LYMPHOMA
     Dosage: 560 MG
     Route: 065
     Dates: start: 20191217
  5. METHOTREXATE EBEWE [METHOTREXATE] [Concomitant]
     Dosage: 100 MG/ML
  6. LOSEC [Concomitant]
     Active Substance: OMEPRAZOLE
     Dosage: 20 MG
  7. NORMALAX [BISACODYL] [Concomitant]
     Dosage: UNK
  8. MABTHERA [Concomitant]
     Active Substance: RITUXIMAB
     Dosage: UNK
     Dates: start: 20191120
  9. VINCRISTINE TEVA [Concomitant]
     Active Substance: VINCRISTINE
     Dosage: UNK
  10. DECAPEPTYL DEPOT [Concomitant]
     Dosage: 3.75 MG
  11. ENDOXAN [CYCLOPHOSPHAMIDE] [Concomitant]
     Active Substance: CYCLOPHOSPHAMIDE
     Dosage: 500 MG
  12. VFEND [Concomitant]
     Active Substance: VORICONAZOLE
     Dosage: 200 MG
  13. FENTANYL. [Concomitant]
     Active Substance: FENTANYL
     Indication: MUCOSAL INFLAMMATION
     Dosage: UNK
  14. FAVOXIL [Concomitant]
  15. MESNA-CELL [Concomitant]
     Dosage: 100 MG/ML
  16. TRUXIMA [Suspect]
     Active Substance: RITUXIMAB-ABBS
     Dosage: 560 MG
     Route: 065
     Dates: start: 20191219
  17. MABTHERA [Concomitant]
     Active Substance: RITUXIMAB
     Indication: BURKITT^S LEUKAEMIA
     Dosage: RECEIVED THE FIRST TWO INJECTIONS DURING HOSPITALIZATION IN ICU
     Dates: start: 20191118
  18. ALEXAN [ALPRAZOLAM] [Concomitant]
     Dosage: UNK
  19. LEUCOVORIN CALCIUM. [Concomitant]
     Active Substance: LEUCOVORIN CALCIUM
     Dosage: UNK
  20. DISEPTYL FORTE [Concomitant]
     Dosage: CAPLET

REACTIONS (8)
  - Condition aggravated [Unknown]
  - Oxygen saturation decreased [Unknown]
  - Product use in unapproved indication [Unknown]
  - Pyrexia [Unknown]
  - Toxicity to various agents [Unknown]
  - Pulmonary toxicity [Unknown]
  - Arthritis [Unknown]
  - Neutropenia [Unknown]

NARRATIVE: CASE EVENT DATE: 20191220
